FAERS Safety Report 5575524-4 (Version None)
Quarter: 2007Q4

REPORT INFORMATION
  Report Type: 
  Country: None (occurrence: None)
  Receive Date: 20071226
  Receipt Date: 20071218
  Transmission Date: 20080405
  Serious: Yes (Other)
  Sender: FDA-Public Use
  Company Number: 07122359

PATIENT
  Age: 86 Year
  Sex: Female

DRUGS (5)
  1. WARFARIN SODIUM TABLET USP, 1 MG [Suspect]
     Dosage: 1MG, QD, ORAL
     Route: 048
     Dates: start: 20071214
  2. WARFARIN SODIUM TABLET USP, 2 MG [Suspect]
     Dosage: 2MG, QD, ORAL
     Route: 048
     Dates: start: 20071207, end: 20071213
  3. WARFARIN SODIUM TABLET USP, 4 MG [Suspect]
     Dosage: 4MG, QD, ORAL
     Route: 048
     Dates: start: 20071203, end: 20071206
  4. LASIX (FRUSEMIDE) [Concomitant]
  5. DILTIAZEM [Concomitant]

REACTIONS (1)
  - INTERNATIONAL NORMALISED RATIO INCREASED [None]
